FAERS Safety Report 8534447-9 (Version None)
Quarter: 2012Q3

REPORT INFORMATION
  Report Type: 
  Country: None (occurrence: None)
  Receive Date: 20120724
  Receipt Date: 20120719
  Transmission Date: 20120928
  Serious: Yes (Hospitalization, Other)
  Sender: FDA-Public Use
  Company Number: US-AMGEN-USASP2012037473

PATIENT
  Age: 82 Year
  Sex: Female
  Weight: 116.6 kg

DRUGS (7)
  1. RYTHMOL [Concomitant]
     Indication: ATRIAL FIBRILLATION
     Dosage: 150 MG, TID
     Route: 048
     Dates: start: 20120505
  2. PRAVASTATIN [Concomitant]
     Indication: HYPERCHOLESTEROLAEMIA
     Dosage: 40 MG, UNK
  3. PROLIA [Suspect]
     Indication: OSTEOPOROSIS POSTMENOPAUSAL
     Dosage: 60 MG, Q6MO
     Route: 058
     Dates: start: 20120221
  4. MIRALAX [Concomitant]
     Indication: CONSTIPATION
     Dosage: UNK UNK, PRN
     Route: 048
  5. MULTIVITAMIN [Concomitant]
     Dosage: UNK UNK, QD
     Route: 048
  6. ASPIRIN [Concomitant]
     Indication: CARDIOVASCULAR EVENT PROPHYLAXIS
     Dosage: 81 MG, QD
     Route: 048
  7. CALCIUM WITH VITAMIN D [Concomitant]
     Indication: SUPPLEMENTATION THERAPY
     Dosage: UNK UNK, QD
     Route: 048

REACTIONS (7)
  - DYSPNOEA [None]
  - HYPOAESTHESIA [None]
  - ASTHENIA [None]
  - CHILLS [None]
  - CATHETERISATION CARDIAC [None]
  - PARAESTHESIA [None]
  - DEPRESSED MOOD [None]
